FAERS Safety Report 7335050-9 (Version None)
Quarter: 2011Q1

REPORT INFORMATION
  Report Type: 
  Country: None (occurrence: None)
  Receive Date: 20110307
  Receipt Date: 20110228
  Transmission Date: 20110831
  Serious: Yes (Death)
  Sender: FDA-Public Use
  Company Number: JP-ROCHE-763254

PATIENT
  Sex: Male

DRUGS (18)
  1. TOCILIZUMAB [Suspect]
     Route: 041
     Dates: start: 20090928, end: 20090928
  2. TOCILIZUMAB [Suspect]
     Route: 041
     Dates: start: 20100125, end: 20100125
  3. TOCILIZUMAB [Suspect]
     Route: 041
     Dates: start: 20090413, end: 20090413
  4. AZULFIDINE [Concomitant]
     Route: 048
  5. TOCILIZUMAB [Suspect]
     Route: 041
     Dates: start: 20090608, end: 20090608
  6. TOCILIZUMAB [Suspect]
     Route: 041
     Dates: start: 20091130, end: 20091130
  7. TOCILIZUMAB [Suspect]
     Route: 041
     Dates: start: 20090706, end: 20090706
  8. TOCILIZUMAB [Suspect]
     Route: 041
     Dates: start: 20100323
  9. PREDONINE [Concomitant]
     Route: 048
  10. TOCILIZUMAB [Suspect]
     Route: 041
     Dates: start: 20091026, end: 20091026
  11. TOCILIZUMAB [Suspect]
     Route: 041
     Dates: start: 20091228, end: 20091228
  12. TOCILIZUMAB [Suspect]
     Route: 041
     Dates: start: 20100222, end: 20100222
  13. TOCILIZUMAB [Suspect]
     Route: 041
     Dates: start: 20090803, end: 20090803
  14. TOCILIZUMAB [Suspect]
     Route: 041
     Dates: start: 20090316, end: 20090316
  15. TOCILIZUMAB [Suspect]
     Route: 041
     Dates: start: 20090511, end: 20090511
  16. TOCILIZUMAB [Suspect]
     Route: 041
     Dates: start: 20090831, end: 20090831
  17. FOLIAMIN [Concomitant]
     Route: 048
  18. TOCILIZUMAB [Suspect]
     Indication: RHEUMATOID ARTHRITIS
     Route: 041
     Dates: start: 20090216, end: 20090216

REACTIONS (1)
  - PLEURISY [None]
